FAERS Safety Report 10727566 (Version 2)
Quarter: 2015Q1

REPORT INFORMATION
  Report Type: Spontaneous
  Country: FR (occurrence: FR)
  Receive Date: 20150121
  Receipt Date: 20150128
  Transmission Date: 20150721
  Serious: Yes (Hospitalization, Other)
  Sender: FDA-Public Use
  Company Number: FR-ASTRAZENECA-2015SE04985

PATIENT
  Age: 29562 Day
  Sex: Male
  Weight: 65 kg

DRUGS (6)
  1. LIPANOR [Concomitant]
     Active Substance: CIPROFIBRATE
     Route: 048
     Dates: end: 201312
  2. IMOVANE [Suspect]
     Active Substance: ZOPICLONE
     Route: 048
  3. TOPALGIC SR [Suspect]
     Active Substance: TRAMADOL
     Route: 048
     Dates: start: 201312, end: 201312
  4. PARACETAMOL [Concomitant]
     Active Substance: ACETAMINOPHEN
     Route: 048
  5. HYTACAND [Suspect]
     Active Substance: CANDESARTAN CILEXETIL\HYDROCHLOROTHIAZIDE
     Dosage: 16 MG + 12.5 MG  1 DF AT MORNING
     Route: 048
     Dates: end: 201312
  6. PARIET [Concomitant]
     Active Substance: RABEPRAZOLE SODIUM
     Route: 048

REACTIONS (4)
  - Hepatomegaly [Unknown]
  - Vertigo [Recovered/Resolved]
  - Head injury [Unknown]
  - Fall [Recovered/Resolved]

NARRATIVE: CASE EVENT DATE: 20131205
